FAERS Safety Report 20332825 (Version 1)
Quarter: 2022Q1

REPORT INFORMATION
  Report Type: Spontaneous
  Country: US (occurrence: None)
  Receive Date: 20220113
  Receipt Date: 20220113
  Transmission Date: 20220423
  Serious: Yes (Hospitalization)
  Sender: FDA-Public Use
  Company Number: None

PATIENT
  Age: 68 Year
  Sex: Male
  Weight: 80.1 kg

DRUGS (5)
  1. REPATHA [Suspect]
     Active Substance: EVOLOCUMAB
     Indication: Hyperlipidaemia
     Dosage: OTHER FREQUENCY : EVERY 2 WEEKS;?
     Route: 058
  2. LEVOXYL [Concomitant]
     Active Substance: LEVOTHYROXINE SODIUM
     Dates: start: 20050101
  3. TADALAFIL [Concomitant]
     Active Substance: TADALAFIL
     Dates: start: 20130101
  4. DUTASTERIDE [Concomitant]
     Active Substance: DUTASTERIDE
     Dates: start: 20130101
  5. CLOPIDOGREL [Concomitant]
     Active Substance: CLOPIDOGREL BISULFATE
     Dates: start: 20200101

REACTIONS (4)
  - Asthma [None]
  - Pneumonia [None]
  - Allergic reaction to excipient [None]
  - Chronic lymphocytic leukaemia [None]

NARRATIVE: CASE EVENT DATE: 20210831
